FAERS Safety Report 19639607 (Version 1)
Quarter: 2021Q3

REPORT INFORMATION
  Report Type: Report from Study
  Country: US (occurrence: US)
  Receive Date: 20210730
  Receipt Date: 20210730
  Transmission Date: 20211014
  Serious: Yes (Other)
  Sender: FDA-Public Use
  Company Number: US-BAYER-2021-181108

PATIENT
  Age: 57 Year
  Sex: Male

DRUGS (1)
  1. STIVARGA [Suspect]
     Active Substance: REGORAFENIB
     Dosage: DAILY DOSE 120 MG FOR DAYS 1?21 EVERY 28 DAY CYCLE. SWALLOW TABS WHOLE, WITH WATER, AND LOW
     Route: 048
     Dates: start: 20210514

REACTIONS (3)
  - Off label use [None]
  - Gait inability [None]
  - Nausea [None]

NARRATIVE: CASE EVENT DATE: 20210514
